FAERS Safety Report 8002868-9 (Version None)
Quarter: 2011Q4

REPORT INFORMATION
  Report Type: 
  Country: None (occurrence: None)
  Receive Date: 20111222
  Receipt Date: 20110104
  Transmission Date: 20120403
  Serious: No
  Sender: FDA-Public Use
  Company Number: US-GLAXOSMITHKLINE-A0904474A

PATIENT
  Age: 81 Year
  Sex: Male

DRUGS (3)
  1. AVODART [Suspect]
     Dosage: .5MG UNKNOWN
     Route: 048
  2. RAPAFLO [Suspect]
     Dosage: 8MG PER DAY
     Route: 048
  3. FLOMAX [Suspect]
     Route: 048

REACTIONS (3)
  - HAEMATURIA [None]
  - PENIS DISORDER [None]
  - PROSTATIC SPECIFIC ANTIGEN INCREASED [None]
